FAERS Safety Report 14983746 (Version 1)
Quarter: 2018Q2

REPORT INFORMATION
  Report Type: Spontaneous
  Country: US (occurrence: US)
  Receive Date: 20180607
  Receipt Date: 20180607
  Transmission Date: 20180711
  Serious: Yes (Hospitalization, Other)
  Sender: FDA-Public Use
  Company Number: US-TEVA-775695USA

PATIENT
  Age: 84 Year
  Sex: Male
  Weight: 67 kg

DRUGS (19)
  1. CLOPIDOGREL [Suspect]
     Active Substance: CLOPIDOGREL BISULFATE
     Indication: CORONARY ARTERY DISEASE
     Dosage: 75 MILLIGRAM DAILY;
     Route: 048
     Dates: start: 20121203, end: 20150412
  2. LISINOPRIL. [Concomitant]
     Active Substance: LISINOPRIL
     Route: 065
     Dates: start: 20140614
  3. PLACEBO [Concomitant]
     Active Substance: UNSPECIFIED INGREDIENT
     Route: 058
     Dates: start: 20140318, end: 20160314
  4. SPIRONOLACTONE. [Concomitant]
     Active Substance: SPIRONOLACTONE
     Route: 065
     Dates: start: 20150126
  5. IRON [Concomitant]
     Active Substance: IRON
     Route: 065
     Dates: start: 20120222
  6. CENTRUM SILVER [Concomitant]
     Active Substance: MINERALS\VITAMINS
     Dosage: 22-FEB-2012
     Route: 065
  7. CITALOPRAM [Concomitant]
     Active Substance: CITALOPRAM HYDROBROMIDE
     Route: 065
     Dates: start: 20150107
  8. PRADAXA [Suspect]
     Active Substance: DABIGATRAN ETEXILATE MESYLATE
     Indication: PROPHYLAXIS
     Dosage: 150 MILLIGRAM DAILY;
     Route: 048
     Dates: start: 20150226, end: 20150412
  9. FISH OIL [Concomitant]
     Active Substance: FISH OIL
     Route: 065
     Dates: start: 20120222
  10. TERAZOSIN [Concomitant]
     Active Substance: TERAZOSIN\TERAZOSIN HYDROCHLORIDE
     Route: 065
     Dates: start: 20110606
  11. ATORVASTATIN [Concomitant]
     Active Substance: ATORVASTATIN
     Route: 065
     Dates: start: 20120222
  12. CARVEDILOL. [Concomitant]
     Active Substance: CARVEDILOL
     Route: 065
     Dates: start: 20140614
  13. CYANOCOBALAMIN. [Concomitant]
     Active Substance: CYANOCOBALAMIN
     Route: 065
     Dates: start: 20120222
  14. CARBIDOPA. [Concomitant]
     Active Substance: CARBIDOPA
     Route: 065
     Dates: start: 20141016
  15. LEVODOPA [Concomitant]
     Active Substance: LEVODOPA
     Route: 065
     Dates: start: 20141016
  16. EPOGEN [Concomitant]
     Active Substance: ERYTHROPOIETIN
     Route: 065
     Dates: start: 20150410, end: 20150410
  17. FUROSEMIDE. [Concomitant]
     Active Substance: FUROSEMIDE
     Route: 065
     Dates: start: 20130624
  18. CILOSTAZOL. [Concomitant]
     Active Substance: CILOSTAZOL
     Route: 065
     Dates: start: 201401
  19. ARANESP [Concomitant]
     Active Substance: DARBEPOETIN ALFA
     Route: 065
     Dates: start: 20150513, end: 20150513

REACTIONS (1)
  - Gastrointestinal haemorrhage [Recovered/Resolved]

NARRATIVE: CASE EVENT DATE: 20150411
